FAERS Safety Report 7411213-9 (Version None)
Quarter: 2011Q2

REPORT INFORMATION
  Report Type: 
  Country: None (occurrence: None)
  Receive Date: 20110413
  Receipt Date: 20110404
  Transmission Date: 20111010
  Serious: Yes (Hospitalization, Other)
  Sender: FDA-Public Use
  Company Number: US-RB-025145-11

PATIENT
  Age: 27 Year
  Sex: Female

DRUGS (8)
  1. SUBOXONE [Suspect]
     Indication: DRUG DEPENDENCE
     Dosage: SUBOXONE SUBLINGUAL FILM
     Route: 060
     Dates: start: 20110201, end: 20110314
  2. PROZAC [Concomitant]
     Indication: DEPRESSION
  3. REMERON [Concomitant]
     Indication: INSOMNIA
  4. SUBOXONE [Suspect]
     Indication: DRUG DEPENDENCE
     Route: 060
     Dates: start: 20070101, end: 20110201
  5. ADDERALL 10 [Concomitant]
     Indication: ATTENTION DEFICIT/HYPERACTIVITY DISORDER
  6. SUBOXONE [Suspect]
     Dosage: SUBLINGUAL FILM. VARIOUS TAPERED DOSES.
     Route: 060
     Dates: start: 20110315, end: 20110401
  7. VALIUM [Concomitant]
     Indication: ANXIETY
  8. VALIUM [Concomitant]
     Indication: PARANOIA

REACTIONS (7)
  - SUICIDE ATTEMPT [None]
  - DEPRESSION [None]
  - PARANOIA [None]
  - HOT FLUSH [None]
  - UNDERDOSE [None]
  - HYPERHIDROSIS [None]
  - ANXIETY [None]
